FAERS Safety Report 8933421 (Version 3)
Quarter: 2013Q1

REPORT INFORMATION
  Report Type: Report from Study
  Country: JP (occurrence: JP)
  Receive Date: 20121128
  Receipt Date: 20130201
  Transmission Date: 20140127
  Serious: Yes (Hospitalization)
  Sender: FDA-Public Use
  Company Number: JP-PFIZER INC-2012224694

PATIENT
  Age: 32 Year
  Sex: Female
  Weight: 63.7 kg

DRUGS (6)
  1. TOFACITINIB CITRATE [Suspect]
     Indication: RHEUMATOID ARTHRITIS
     Dosage: 5 MG, 2X/DAY
     Route: 048
     Dates: start: 20100402, end: 20100721
  2. TOFACITINIB CITRATE [Suspect]
     Dosage: 10 MG, 2X/DAY
     Route: 048
     Dates: start: 20100722, end: 20121018
  3. MEDROL [Concomitant]
     Indication: RHEUMATOID ARTHRITIS
     Dosage: 2 MG, 2X/DAY
     Route: 048
     Dates: start: 20090918
  4. LOXONIN [Concomitant]
     Indication: RHEUMATOID ARTHRITIS
     Dosage: 120 MG, 2X/DAY
     Route: 048
     Dates: start: 20090918
  5. MARZULENE [Concomitant]
     Indication: PROPHYLAXIS
     Dosage: 2 G, 2X/DAY
     Route: 048
     Dates: start: 20090918
  6. VOLTAREN [Concomitant]
     Indication: RHEUMATOID ARTHRITIS
     Dosage: 15 MG, 1X/DAY
     Route: 062
     Dates: start: 20090918

REACTIONS (1)
  - Ovarian germ cell teratoma benign [Recovered/Resolved]
